FAERS Safety Report 14204946 (Version 1)
Quarter: 2017Q4

REPORT INFORMATION
  Report Type: Spontaneous
  Country: US (occurrence: US)
  Receive Date: 20171120
  Receipt Date: 20171120
  Transmission Date: 20180321
  Serious: No
  Sender: FDA-Public Use
  Company Number: US-LEXICON PHARMACEUTICALS, INC-17-1606-01065

PATIENT
  Age: 70 Year
  Sex: Female

DRUGS (17)
  1. METOPROLOL. [Concomitant]
     Active Substance: METOPROLOL
  2. LOPERAMIDE [Concomitant]
     Active Substance: LOPERAMIDE
  3. FERROUS SULF [Concomitant]
     Active Substance: FERROUS SULFATE
  4. TELOTRISTAT ETHYL [Suspect]
     Active Substance: TELOTRISTAT ETHYL
     Route: 048
     Dates: start: 20170912, end: 20171010
  5. TELOTRISTAT ETHYL [Suspect]
     Active Substance: TELOTRISTAT ETHYL
     Indication: CARCINOID TUMOUR
     Route: 048
     Dates: start: 20170511, end: 20170912
  6. HYDROCHLOROTHIAZIDE. [Concomitant]
     Active Substance: HYDROCHLOROTHIAZIDE
  7. POTASSIUM [Concomitant]
     Active Substance: POTASSIUM
  8. SANDOSTATIN [Concomitant]
     Active Substance: OCTREOTIDE ACETATE
  9. CITALOPRAM [Concomitant]
     Active Substance: CITALOPRAM HYDROBROMIDE
  10. VITAMIN D [Concomitant]
     Active Substance: CHOLECALCIFEROL
  11. GINKGO [Concomitant]
     Active Substance: GINKGO
  12. ASPIR [Concomitant]
     Active Substance: ASPIRIN
  13. VITAMIN B12 [Concomitant]
     Active Substance: CYANOCOBALAMIN
  14. TOPAMAX [Concomitant]
     Active Substance: TOPIRAMATE
  15. TELOTRISTAT ETHYL [Suspect]
     Active Substance: TELOTRISTAT ETHYL
     Route: 048
     Dates: start: 201710
  16. SYNTHROID [Concomitant]
     Active Substance: LEVOTHYROXINE SODIUM
  17. SUTENT [Concomitant]
     Active Substance: SUNITINIB MALATE

REACTIONS (1)
  - Constipation [Recovered/Resolved]

NARRATIVE: CASE EVENT DATE: 20171010
